FAERS Safety Report 10230773 (Version 2)
Quarter: 2014Q3

REPORT INFORMATION
  Report Type: Spontaneous
  Country: JP (occurrence: JP)
  Receive Date: 20140611
  Receipt Date: 20140704
  Transmission Date: 20150326
  Serious: Yes (Other)
  Sender: FDA-Public Use
  Company Number: PHHY2014JP071038

PATIENT
  Age: 18 Year
  Sex: Female

DRUGS (1)
  1. NEORAL [Suspect]
     Active Substance: CYCLOSPORINE
     Indication: NEPHROTIC SYNDROME
     Route: 048

REACTIONS (6)
  - Renal disorder [Unknown]
  - Glomerulosclerosis [Unknown]
  - Nephrotic syndrome [Unknown]
  - Disease progression [Unknown]
  - Toxicity to various agents [Unknown]
  - Renal impairment [Unknown]
